FAERS Safety Report 9760911 (Version 1)
Quarter: 2013Q4

REPORT INFORMATION
  Report Type: Spontaneous
  Country: JP (occurrence: JP)
  Receive Date: 20131216
  Receipt Date: 20131216
  Transmission Date: 20140711
  Serious: Yes (Hospitalization)
  Sender: FDA-Public Use
  Company Number: JP-TEVA-450629ISR

PATIENT
  Age: 38 Year
  Sex: Female

DRUGS (2)
  1. PREDNISOLONE [Suspect]
     Indication: SYSTEMIC LUPUS ERYTHEMATOSUS
     Dosage: 60 MILLIGRAM DAILY; 60 MG/D (MAXIMUM DOSAGE)
     Route: 065
  2. PREDNISOLONE [Suspect]
     Indication: SYSTEMIC LUPUS ERYTHEMATOSUS
     Dosage: 15 MILLIGRAM DAILY; 15 MG/D; MAXIMUM DOSAGE 60 MG/D
     Route: 065

REACTIONS (3)
  - Arthritis bacterial [Recovering/Resolving]
  - Mycobacterium avium complex infection [Recovering/Resolving]
  - Osteomyelitis [Recovering/Resolving]
